APPROVED DRUG PRODUCT: MIRABEGRON
Active Ingredient: MIRABEGRON
Strength: 50MG
Dosage Form/Route: TABLET, EXTENDED RELEASE;ORAL
Application: A217061 | Product #001
Applicant: SAWAI USA INC
Approved: May 6, 2025 | RLD: No | RS: No | Type: DISCN